FAERS Safety Report 9943368 (Version 2)
Quarter: 2014Q1

REPORT INFORMATION
  Report Type: Spontaneous
  Country: HR (occurrence: HR)
  Receive Date: 20140303
  Receipt Date: 20140314
  Transmission Date: 20141002
  Serious: Yes (Other)
  Sender: FDA-Public Use
  Company Number: HR-GILEAD-2014-0095710

PATIENT
  Age: 77 Year
  Sex: Male

DRUGS (10)
  1. RANOLAZINE [Suspect]
     Indication: ANGINA PECTORIS
     Dosage: 500 MG, QD
     Route: 048
     Dates: start: 20131202, end: 20131211
  2. OMACOR [Concomitant]
     Indication: ANGINA PECTORIS
     Dosage: 1000 MG, QD
     Route: 048
     Dates: start: 20110208
  3. TRITACE [Concomitant]
     Indication: ESSENTIAL HYPERTENSION
     Dosage: 2.5 MG, QD
     Route: 048
     Dates: start: 20131128
  4. CONTROLOC                          /01263201/ [Concomitant]
     Indication: PROPHYLAXIS
     Dosage: 20 MG, QD
     Route: 048
     Dates: start: 20131209
  5. LYBROL [Concomitant]
     Indication: MYOCARDIAL ISCHAEMIA
     Dosage: 1.25 MG, QD
     Route: 048
     Dates: start: 20131128
  6. FURSEMID                           /00032601/ [Concomitant]
     Indication: CARDIAC FAILURE
     Dosage: 40 MG, QD
     Route: 048
     Dates: start: 20110127
  7. POTASSIUM CHLORIDE [Concomitant]
     Indication: CARDIAC FAILURE
     Dosage: 500 MG, QD
     Route: 048
     Dates: start: 20110127
  8. TRIMETAZIDIN [Concomitant]
     Indication: MYOCARDIAL ISCHAEMIA
     Dosage: 70 MG, QD
     Dates: start: 20131018
  9. NOVORAPID [Concomitant]
     Indication: TYPE 1 DIABETES MELLITUS
     Dosage: 5 IU, QD
     Route: 058
     Dates: start: 20110208
  10. NOVOMIX [Concomitant]
     Indication: TYPE 1 DIABETES MELLITUS
     Dosage: 24 IU, QD
     Route: 058
     Dates: start: 20110208

REACTIONS (1)
  - Epistaxis [Recovered/Resolved]
